FAERS Safety Report 6750531-4 (Version None)
Quarter: 2010Q2

REPORT INFORMATION
  Report Type: 
  Country: None (occurrence: None)
  Receive Date: 20100528
  Receipt Date: 20100528
  Transmission Date: 20101027
  Serious: Yes (Hospitalization)
  Sender: FDA-Public Use
  Company Number: None

PATIENT
  Age: 57 Year
  Sex: Male
  Weight: 136.3 kg

DRUGS (3)
  1. ALENDRONATE SODIUM [Suspect]
     Dosage: 70 MG QWEEK PO
     Route: 048
     Dates: start: 20090827, end: 20100517
  2. ASPIRIN [Suspect]
     Indication: DIABETES MELLITUS
     Dosage: 325 MG EVERY DAY PO
     Route: 048
     Dates: start: 20000804
  3. ASPIRIN [Suspect]
     Indication: HYPERTENSION
     Dosage: 325 MG EVERY DAY PO
     Route: 048
     Dates: start: 20000804

REACTIONS (1)
  - HAEMORRHAGE [None]
